FAERS Safety Report 6155221-7 (Version None)
Quarter: 2009Q2

REPORT INFORMATION
  Report Type: 
  Country: None (occurrence: None)
  Receive Date: 20090415
  Receipt Date: 20090410
  Transmission Date: 20091009
  Serious: No
  Sender: FDA-Public Use
  Company Number: US-B.I. PHARMACEUTICALS,INC./RIDGEFIELD-2009-BP-03322BP

PATIENT
  Sex: Female

DRUGS (9)
  1. SPIRIVA [Suspect]
     Indication: CHRONIC OBSTRUCTIVE PULMONARY DISEASE
     Dosage: 18MCG
  2. SPIRIVA [Suspect]
     Indication: EMPHYSEMA
  3. SPIRIVA [Suspect]
     Indication: BRONCHITIS CHRONIC
  4. ALBUTEROL SULFATE [Concomitant]
  5. ATROVENT HFA [Concomitant]
  6. COMBIVENT [Concomitant]
  7. FORADIL [Concomitant]
  8. ALBUTEROL [Concomitant]
  9. TRIAMTERENE [Concomitant]

REACTIONS (1)
  - DRY MOUTH [None]
